FAERS Safety Report 7583547-9 (Version None)
Quarter: 2011Q2

REPORT INFORMATION
  Report Type: 
  Country: None (occurrence: None)
  Receive Date: 20110630
  Receipt Date: 20110623
  Transmission Date: 20111010
  Serious: Yes (Hospitalization, Other)
  Sender: FDA-Public Use
  Company Number: US-ROXANE LABORATORIES, INC.-2011-RO-00886RO

PATIENT
  Age: 69 Year
  Sex: Female

DRUGS (6)
  1. LITHIUM CARBONATE [Suspect]
     Dosage: 400 MG
  2. CLONAZEPAM [Suspect]
     Dosage: 1.5 MG
  3. LITHIUM CARBONATE [Suspect]
     Indication: BIPOLAR DISORDER
     Dosage: 300 MG
  4. ARIPIPRAZOLE [Suspect]
     Dosage: 30 MG
  5. DIVALPROEX EXTENDED-RELEASE [Suspect]
     Dosage: 1000 MG
  6. TRAZODONE HCL [Suspect]
     Dosage: 100 MG

REACTIONS (6)
  - DEHYDRATION [None]
  - AZOTAEMIA [None]
  - TOXICITY TO VARIOUS AGENTS [None]
  - CHOREOATHETOSIS [None]
  - HYPERNATRAEMIA [None]
  - ABNORMAL BEHAVIOUR [None]
